FAERS Safety Report 8215802-3 (Version None)
Quarter: 2012Q1

REPORT INFORMATION
  Report Type: 
  Country: None (occurrence: None)
  Receive Date: 20120316
  Receipt Date: 20120307
  Transmission Date: 20120608
  Serious: Yes (Hospitalization)
  Sender: FDA-Public Use
  Company Number: US-ACTELION-A-NJ2012-61744

PATIENT

DRUGS (2)
  1. TRACLEER [Suspect]
     Indication: PULMONARY ARTERIAL HYPERTENSION
     Dosage: 62.5 MG, BID
     Route: 048
     Dates: start: 20110114
  2. REVATIO [Concomitant]

REACTIONS (10)
  - FLUID OVERLOAD [None]
  - RENAL FAILURE ACUTE [None]
  - COUGH [None]
  - ATRIAL FIBRILLATION [None]
  - CONDITION AGGRAVATED [None]
  - DYSPNOEA [None]
  - NEOPLASM PROSTATE [None]
  - CARDIAC FAILURE CONGESTIVE [None]
  - PNEUMONIA STAPHYLOCOCCAL [None]
  - URINARY TRACT INFECTION [None]
